FAERS Safety Report 6983987-2 (Version None)
Quarter: 2010Q3

REPORT INFORMATION
  Report Type: 
  Country: None (occurrence: None)
  Receive Date: 20100915
  Receipt Date: 20090507
  Transmission Date: 20110219
  Serious: No
  Sender: FDA-Public Use
  Company Number: US-WYE-H09271109

PATIENT
  Sex: Female
  Weight: 74.91 kg

DRUGS (3)
  1. PRISTIQ [Suspect]
     Indication: FIBROMYALGIA
     Route: 048
     Dates: start: 20090401
  2. SOMA [Concomitant]
  3. TRAMADOL [Concomitant]

REACTIONS (1)
  - MUSCLE SPASMS [None]
